FAERS Safety Report 21018231 (Version 1)
Quarter: 2022Q2

REPORT INFORMATION
  Report Type: Spontaneous
  Country: US (occurrence: None)
  Receive Date: 20220628
  Receipt Date: 20220628
  Transmission Date: 20220721
  Serious: Yes (Death)
  Sender: FDA-Public Use
  Company Number: None

PATIENT
  Sex: Male

DRUGS (16)
  1. REPATHA [Suspect]
     Active Substance: EVOLOCUMAB
     Indication: Hyperlipidaemia
     Dosage: OTHER FREQUENCY : EVERY OTHER WEEK;?
     Route: 058
  2. ASIAN GINSENG [Concomitant]
     Active Substance: ASIAN GINSENG
  3. VITAMINS [Concomitant]
     Active Substance: VITAMINS
  4. VITAMIN C [Concomitant]
     Active Substance: ASCORBIC ACID
  5. CLONIDINE [Concomitant]
     Active Substance: CLONIDINE
  6. CLOPIDOGREL [Concomitant]
     Active Substance: CLOPIDOGREL BISULFATE
  7. LORATADINE [Concomitant]
     Active Substance: LORATADINE
  8. TIZANIDINE [Concomitant]
     Active Substance: TIZANIDINE
  9. ALLOPURINOL [Concomitant]
     Active Substance: ALLOPURINOL
  10. BYSTOLIC [Concomitant]
     Active Substance: NEBIVOLOL HYDROCHLORIDE
  11. HYDROCHLOROTHIAZIDE [Concomitant]
     Active Substance: HYDROCHLOROTHIAZIDE
  12. ISOSORBIDE MONONITRATE [Concomitant]
     Active Substance: ISOSORBIDE MONONITRATE
  13. BENADRYL [Concomitant]
     Active Substance: DIPHENHYDRAMINE HYDROCHLORIDE
  14. EPIPEN [Concomitant]
     Active Substance: EPINEPHRINE
  15. NITROSTAT [Concomitant]
     Active Substance: NITROGLYCERIN
  16. ACETAMINOPHEN\OXYCODONE HYDROCHLORIDE [Concomitant]
     Active Substance: ACETAMINOPHEN\OXYCODONE HYDROCHLORIDE

REACTIONS (1)
  - Death [None]
